FAERS Safety Report 7281739-X (Version None)
Quarter: 2011Q1

REPORT INFORMATION
  Report Type: 
  Country: None (occurrence: None)
  Receive Date: 20110208
  Receipt Date: 20110206
  Transmission Date: 20110831
  Serious: Yes (Other)
  Sender: FDA-Public Use
  Company Number: US-CEPHALON-2009010092

PATIENT
  Sex: Female
  Weight: 100 kg

DRUGS (5)
  1. NUVIGIL [Suspect]
     Indication: NARCOLEPSY
     Route: 048
     Dates: start: 20090722
  2. TYLENOL W/ CODEINE NO. 3 [Concomitant]
  3. ABILIFY [Concomitant]
  4. ZOLOFT [Concomitant]
  5. NEXIUM [Concomitant]

REACTIONS (3)
  - PHARYNGEAL OEDEMA [None]
  - DRY MOUTH [None]
  - FEELING ABNORMAL [None]
